FAERS Safety Report 4496769-0 (Version None)
Quarter: 2004Q4

REPORT INFORMATION
  Report Type: 
  Country: None (occurrence: None)
  Receive Date: 20041109
  Receipt Date: 20041104
  Transmission Date: 20050328
  Serious: Yes (Other)
  Sender: FDA-Public Use
  Company Number: GR-ROCHE-385508

PATIENT
  Age: 23 Year
  Sex: Female

DRUGS (2)
  1. PEGASYS [Suspect]
     Route: 058
     Dates: start: 20041019, end: 20041101
  2. COPEGUS [Suspect]
     Route: 048
     Dates: start: 20041019, end: 20041101

REACTIONS (13)
  - AFFECTIVE DISORDER [None]
  - BONE PAIN [None]
  - COLOUR BLINDNESS [None]
  - DIZZINESS [None]
  - DYSPHAGIA [None]
  - DYSPNOEA [None]
  - GINGIVAL BLEEDING [None]
  - INJECTION SITE RASH [None]
  - MYALGIA [None]
  - NERVOUSNESS [None]
  - PHARYNGOLARYNGEAL PAIN [None]
  - PYREXIA [None]
  - WEIGHT DECREASED [None]
